FAERS Safety Report 8037132-5 (Version None)
Quarter: 2012Q1

REPORT INFORMATION
  Report Type: 
  Country: None (occurrence: None)
  Receive Date: 20120111
  Receipt Date: 20120104
  Transmission Date: 20120608
  Serious: No
  Sender: FDA-Public Use
  Company Number: US-BAYER-2012-003063

PATIENT
  Age: 53 Year
  Sex: Female

DRUGS (6)
  1. ZANAFLEX [Concomitant]
  2. BETASERON [Suspect]
     Dosage: 0.25 MG, UNK
     Route: 058
  3. LASIX [Concomitant]
  4. BENAZEPRIL HYDROCHLORIDE [Concomitant]
  5. BACLOFEN [Concomitant]
  6. ALDACTONE [Concomitant]

REACTIONS (1)
  - INJECTION SITE MASS [None]
